FAERS Safety Report 20461234 (Version 1)
Quarter: 2022Q1

REPORT INFORMATION
  Report Type: Spontaneous
  Country: US (occurrence: None)
  Receive Date: 20220210
  Receipt Date: 20220210
  Transmission Date: 20220423
  Serious: Yes (Other)
  Sender: FDA-Public Use
  Company Number: None

PATIENT
  Age: 50 Year
  Sex: Female
  Weight: 63 kg

DRUGS (1)
  1. PROGESTERONE [Suspect]
     Active Substance: PROGESTERONE
     Indication: Menopause
     Dosage: FREQUENCY : AT BEDTIME;?
     Route: 048
     Dates: start: 20220209, end: 20220209

REACTIONS (6)
  - Feeling abnormal [None]
  - Dysarthria [None]
  - Gait disturbance [None]
  - Balance disorder [None]
  - Dizziness [None]
  - Headache [None]

NARRATIVE: CASE EVENT DATE: 20220209
